FAERS Safety Report 4779904-6 (Version None)
Quarter: 2005Q3

REPORT INFORMATION
  Report Type: 
  Country: None (occurrence: None)
  Receive Date: 20050914
  Receipt Date: 20050430
  Transmission Date: 20060218
  Serious: Yes (Hospitalization)
  Sender: FDA-Public Use
  Company Number: 163-20785-05050048

PATIENT
  Age: 57 Year
  Sex: Female

DRUGS (33)
  1. THALOMID [Suspect]
     Indication: MULTIPLE MYELOMA
     Dosage: 100 MG, DAILY, ORAL
     Route: 048
     Dates: start: 20040401, end: 20040501
  2. THALOMID [Suspect]
     Indication: MULTIPLE MYELOMA
     Dosage: 100 MG, DAILY, ORAL
     Route: 048
     Dates: start: 20050124, end: 20050101
  3. THALOMID [Suspect]
     Indication: MULTIPLE MYELOMA
     Dosage: 100 MG, DAILY, ORAL
     Route: 048
     Dates: start: 20041104
  4. THALOMID [Suspect]
     Indication: MULTIPLE MYELOMA
     Dosage: 100 MG, DAILY, ORAL
     Route: 048
     Dates: start: 20050304
  5. DEXAMETHASONE [Suspect]
     Indication: MULTIPLE MYELOMA
     Dosage: UNKNOWN; 20 MG, DAILY, ORAL; DAILY, ORAL; ORAL
     Route: 048
     Dates: start: 20041104, end: 20040101
  6. DEXAMETHASONE [Suspect]
     Indication: MULTIPLE MYELOMA
     Dosage: UNKNOWN; 20 MG, DAILY, ORAL; DAILY, ORAL; ORAL
     Route: 048
     Dates: start: 20040401, end: 20040501
  7. DEXAMETHASONE [Suspect]
     Indication: MULTIPLE MYELOMA
     Dosage: UNKNOWN; 20 MG, DAILY, ORAL; DAILY, ORAL; ORAL
     Route: 048
     Dates: start: 20050124, end: 20050101
  8. DEXAMETHASONE [Suspect]
     Indication: MULTIPLE MYELOMA
     Dosage: UNKNOWN; 20 MG, DAILY, ORAL; DAILY, ORAL; ORAL
     Route: 048
     Dates: start: 20050314, end: 20050317
  9. VELCADE [Suspect]
     Indication: MULTIPLE MYELOMA
     Dosage: 1.6 MG, DAILY, INTRAVENOUS; DAILY, INTRAVENOUS; 1.6 MG, DAILY, INTRAVENOUS; DAILY, INTRAVENOUS
     Route: 042
     Dates: start: 20041104, end: 20040101
  10. VELCADE [Suspect]
     Indication: MULTIPLE MYELOMA
     Dosage: 1.6 MG, DAILY, INTRAVENOUS; DAILY, INTRAVENOUS; 1.6 MG, DAILY, INTRAVENOUS; DAILY, INTRAVENOUS
     Route: 042
     Dates: start: 20040401, end: 20040501
  11. VELCADE [Suspect]
     Indication: MULTIPLE MYELOMA
     Dosage: 1.6 MG, DAILY, INTRAVENOUS; DAILY, INTRAVENOUS; 1.6 MG, DAILY, INTRAVENOUS; DAILY, INTRAVENOUS
     Route: 042
     Dates: start: 20050124, end: 20050101
  12. VELCADE [Suspect]
     Indication: MULTIPLE MYELOMA
     Dosage: 1.6 MG, DAILY, INTRAVENOUS; DAILY, INTRAVENOUS; 1.6 MG, DAILY, INTRAVENOUS; DAILY, INTRAVENOUS
     Route: 042
     Dates: start: 20050307
  13. VELCADE [Suspect]
     Indication: MULTIPLE MYELOMA
     Dosage: 1.6 MG, DAILY, INTRAVENOUS; DAILY, INTRAVENOUS; 1.6 MG, DAILY, INTRAVENOUS; DAILY, INTRAVENOUS
     Route: 042
     Dates: start: 20050310
  14. VELCADE [Suspect]
     Indication: MULTIPLE MYELOMA
     Dosage: 1.6 MG, DAILY, INTRAVENOUS; DAILY, INTRAVENOUS; 1.6 MG, DAILY, INTRAVENOUS; DAILY, INTRAVENOUS
     Route: 042
     Dates: start: 20050314
  15. VELCADE [Suspect]
     Indication: MULTIPLE MYELOMA
     Dosage: 1.6 MG, DAILY, INTRAVENOUS; DAILY, INTRAVENOUS; 1.6 MG, DAILY, INTRAVENOUS; DAILY, INTRAVENOUS
     Route: 042
     Dates: start: 20050317
  16. ADRIAMYCIN PFS [Suspect]
     Indication: MULTIPLE MYELOMA
     Dates: start: 20041104, end: 20040101
  17. ADRIAMYCIN PFS [Suspect]
     Indication: MULTIPLE MYELOMA
     Dates: start: 20040401, end: 20040501
  18. ADRIAMYCIN PFS [Suspect]
     Indication: MULTIPLE MYELOMA
     Dates: start: 20050124, end: 20050101
  19. CYCLOPHOSPHAMIDE [Suspect]
     Indication: MULTIPLE MYELOMA
     Dates: start: 20041104, end: 20040101
  20. CYCLOPHOSPHAMIDE [Suspect]
     Indication: MULTIPLE MYELOMA
     Dates: start: 20040401, end: 20040501
  21. CYCLOPHOSPHAMIDE [Suspect]
     Indication: MULTIPLE MYELOMA
     Dates: start: 20050124, end: 20050101
  22. ETOPOSIDE [Suspect]
     Indication: MULTIPLE MYELOMA
     Dates: start: 20041104, end: 20040101
  23. ETOPOSIDE [Suspect]
     Indication: MULTIPLE MYELOMA
     Dates: start: 20040401, end: 20040501
  24. ETOPOSIDE [Suspect]
     Indication: MULTIPLE MYELOMA
     Dates: start: 20050124, end: 20050101
  25. MELPHALAN (MELPHALAN) [Suspect]
     Indication: MULTIPLE MYELOMA
     Dosage: 200 MG/M2
     Dates: start: 20040617, end: 20040617
  26. MELPHALAN (MELPHALAN) [Suspect]
     Indication: MULTIPLE MYELOMA
     Dosage: 200 MG/M2
     Dates: start: 20040907, end: 20040907
  27. CISPLATIN [Suspect]
     Indication: MULTIPLE MYELOMA
     Dates: start: 20041104, end: 20040101
  28. CISPLATIN [Suspect]
     Indication: MULTIPLE MYELOMA
     Dates: start: 20040401, end: 20040501
  29. CISPLATIN [Suspect]
     Indication: MULTIPLE MYELOMA
     Dates: start: 20050124, end: 20050101
  30. ACYCLOVIR [Concomitant]
  31. DIFLUCAN [Concomitant]
  32. LOVENOX [Concomitant]
  33. LEVAQUIN [Concomitant]

REACTIONS (7)
  - COLITIS [None]
  - DEHYDRATION [None]
  - DIARRHOEA [None]
  - PRODUCTIVE COUGH [None]
  - PYREXIA [None]
  - SYNCOPE [None]
  - THROMBOCYTOPENIA [None]
